FAERS Safety Report 13566232 (Version 1)
Quarter: 2017Q2

REPORT INFORMATION
  Report Type: Spontaneous
  Country: US (occurrence: US)
  Receive Date: 20170519
  Receipt Date: 20170519
  Transmission Date: 20170830
  Serious: Yes (Other)
  Sender: FDA-Public Use
  Company Number: None

PATIENT
  Age: 69 Year
  Sex: Male
  Weight: 111.6 kg

DRUGS (7)
  1. PRALUENT [Suspect]
     Active Substance: ALIROCUMAB
     Indication: BLOOD CHOLESTEROL INCREASED
     Dosage: BI MONTHLY; INJECTED INTO STOMACH AREA?
     Dates: start: 20170517, end: 20170517
  2. BABY ASPIRIN [Concomitant]
     Active Substance: ASPIRIN
  3. ZETIA [Concomitant]
     Active Substance: EZETIMIBE
  4. VITAMIN C [Concomitant]
     Active Substance: ASCORBIC ACID
  5. FISH OIL [Concomitant]
     Active Substance: FISH OIL
  6. COCONUT OIL [Concomitant]
     Active Substance: COCONUT OIL
  7. VITAMIN B [Concomitant]
     Active Substance: VITAMIN B

REACTIONS (13)
  - Immune system disorder [None]
  - Nightmare [None]
  - Hyperhidrosis [None]
  - Paraesthesia [None]
  - Thirst [None]
  - Chills [None]
  - Headache [None]
  - Hypoaesthesia [None]
  - Nausea [None]
  - Burning sensation [None]
  - Dry mouth [None]
  - Insomnia [None]
  - Fatigue [None]

NARRATIVE: CASE EVENT DATE: 20170517
